FAERS Safety Report 8862634 (Version 5)
Quarter: 2013Q1

REPORT INFORMATION
  Report Type: Spontaneous
  Country: US (occurrence: US)
  Receive Date: 20121026
  Receipt Date: 20130314
  Transmission Date: 20140127
  Serious: Yes (Hospitalization, Other)
  Sender: FDA-Public Use
  Company Number: US-009507513-1210USA005990

PATIENT
  Sex: Female
  Weight: 67.57 kg

DRUGS (6)
  1. FOSAMAX [Suspect]
     Indication: OSTEOPOROSIS
     Dosage: 70 MG, QW
     Route: 048
     Dates: start: 200101, end: 200808
  2. FOSAMAX [Suspect]
     Indication: OSTEOPENIA
  3. CALCIUM (UNSPECIFIED) (+) VITAMIN D (UNSPECIFIED) [Concomitant]
     Dosage: 500 MG, BID
  4. SYNTHROID [Concomitant]
     Indication: HYPOTHYROIDISM
     Dosage: UNK
     Dates: start: 2004
  5. BONIVA [Concomitant]
     Indication: OSTEOPENIA
     Dosage: 150 MG, UNK
     Route: 048
     Dates: start: 200712, end: 201111
  6. BONIVA [Concomitant]
     Indication: OSTEOPOROSIS

REACTIONS (32)
  - Intramedullary rod insertion [Unknown]
  - Femur fracture [Recovered/Resolved]
  - Femur fracture [Unknown]
  - Fall [Unknown]
  - Humerus fracture [Unknown]
  - Open reduction of fracture [Unknown]
  - Polyneuropathy [Unknown]
  - Major depression [Unknown]
  - Suicide attempt [Unknown]
  - Overdose [Unknown]
  - Type 2 diabetes mellitus [Unknown]
  - Suicide attempt [Unknown]
  - Fall [Unknown]
  - Overdose [Unknown]
  - Pneumonia [Unknown]
  - Hypokalaemia [Unknown]
  - Hyperhidrosis [Unknown]
  - Tooth fracture [Unknown]
  - Tooth extraction [Unknown]
  - Hyperlipidaemia [Unknown]
  - Muscular weakness [Unknown]
  - Low turnover osteopathy [Unknown]
  - Fall [Unknown]
  - Bipolar disorder [Unknown]
  - Depression [Unknown]
  - Anxiety [Unknown]
  - Kyphosis [Unknown]
  - Alopecia [Unknown]
  - Local swelling [Unknown]
  - Dyspepsia [Unknown]
  - Back pain [Unknown]
  - Muscle spasms [Unknown]
